FAERS Safety Report 14450111 (Version 1)
Quarter: 2018Q1

REPORT INFORMATION
  Report Type: Spontaneous
  Country: DK (occurrence: DK)
  Receive Date: 20180129
  Receipt Date: 20180129
  Transmission Date: 20180509
  Serious: Yes (Hospitalization)
  Sender: FDA-Public Use
  Company Number: DK-ROCHE-2058164

PATIENT
  Age: 49 Year
  Sex: Male

DRUGS (2)
  1. XELODA [Suspect]
     Active Substance: CAPECITABINE
     Indication: COLON CANCER
     Dosage: ON 14/JUN/2013, THE PATIENT RECEIVED MOST RECENT DOSE OF CAPECITABIN
     Route: 048
     Dates: start: 20130506
  2. OXALIPLATIN. [Concomitant]
     Active Substance: OXALIPLATIN
     Indication: COLON CANCER
     Route: 065

REACTIONS (8)
  - Pain [Not Recovered/Not Resolved]
  - Vascular graft [Unknown]
  - Ejection fraction decreased [Unknown]
  - Paraesthesia [Unknown]
  - Chest discomfort [Unknown]
  - Myocardial infarction [Recovered/Resolved with Sequelae]
  - Angina pectoris [Not Recovered/Not Resolved]
  - Exercise tolerance decreased [Not Recovered/Not Resolved]

NARRATIVE: CASE EVENT DATE: 20130527
